FAERS Safety Report 17551084 (Version 1)
Quarter: 2020Q1

REPORT INFORMATION
  Report Type: Spontaneous
  Country: US (occurrence: US)
  Receive Date: 20200317
  Receipt Date: 20200317
  Transmission Date: 20200409
  Serious: No
  Sender: FDA-Public Use
  Company Number: US-SHIRE-US202009671

PATIENT
  Sex: Female

DRUGS (1)
  1. GATTEX [Suspect]
     Active Substance: TEDUGLUTIDE\WATER
     Indication: PRODUCT USED FOR UNKNOWN INDICATION
     Dosage: 0.1970 UNIT: UNKNOWN, 1X/DAY:QD
     Route: 058

REACTIONS (2)
  - Nausea [Not Recovered/Not Resolved]
  - Limb mass [Not Recovered/Not Resolved]
